FAERS Safety Report 4357614-7 (Version None)
Quarter: 2004Q2

REPORT INFORMATION
  Report Type: 
  Country: None (occurrence: None)
  Receive Date: 20040512
  Receipt Date: 20040512
  Transmission Date: 20050107
  Serious: Yes (Hospitalization)
  Sender: FDA-Public Use
  Company Number: None

PATIENT
  Age: 64 Year
  Sex: Male

DRUGS (1)
  1. DIVALPROEX SODIUM [Suspect]
     Indication: CONVULSION
     Dosage: 250 MG BID ORAL
     Route: 048
     Dates: start: 20040303, end: 20040409

REACTIONS (3)
  - AMNESIA [None]
  - CONFUSIONAL STATE [None]
  - SWELLING FACE [None]
